FAERS Safety Report 8178586-3 (Version None)
Quarter: 2012Q1

REPORT INFORMATION
  Report Type: 
  Country: None (occurrence: None)
  Receive Date: 20120301
  Receipt Date: 20120227
  Transmission Date: 20120608
  Serious: Yes (Life-Threatening, Other)
  Sender: FDA-Public Use
  Company Number: US-ASTRAZENECA-2012SE13632

PATIENT
  Sex: Male

DRUGS (4)
  1. PROLIXIN [Suspect]
     Indication: MENTAL DISORDER
     Route: 065
  2. SEROQUEL [Suspect]
     Indication: ANXIETY DISORDER
     Route: 048
  3. SEROQUEL [Suspect]
     Indication: MENTAL DISORDER
     Route: 048
  4. PROLIXIN [Suspect]
     Indication: ANXIETY DISORDER
     Route: 065

REACTIONS (11)
  - HYPERSENSITIVITY [None]
  - OVERDOSE [None]
  - CARDIAC DISORDER [None]
  - BRAIN INJURY [None]
  - NEUROLEPTIC MALIGNANT SYNDROME [None]
  - DRUG INTERACTION [None]
  - MYOCARDIAL INFARCTION [None]
  - TARDIVE DYSKINESIA [None]
  - PSYCHOTIC DISORDER [None]
  - NERVE INJURY [None]
  - ADVERSE DRUG REACTION [None]
